FAERS Safety Report 8476287 (Version 3)
Quarter: 2013Q1

REPORT INFORMATION
  Report Type: Spontaneous
  Country: US (occurrence: None)
  Receive Date: 20120314
  Receipt Date: 20121204
  Transmission Date: 20140127
  Serious: Yes (Life-Threatening, Hospitalization)
  Sender: FDA-Public Use
  Company Number: ACO_29593_2012

PATIENT
  Age: 47 Year
  Sex: Female
  Weight: 61.7 kg

DRUGS (2)
  1. AMPYRA [Suspect]
     Indication: GAIT DISTURBANCE
     Dosage: 10 MG, BID, ORAL
     Route: 048
     Dates: start: 201006, end: 20110608
  2. DETROL LA [Concomitant]

REACTIONS (2)
  - Volvulus [None]
  - Constipation [None]
